FAERS Safety Report 13645680 (Version 1)
Quarter: 2017Q2

REPORT INFORMATION
  Report Type: Spontaneous
  Country: FR (occurrence: FR)
  Receive Date: 20170613
  Receipt Date: 20170613
  Transmission Date: 20170830
  Serious: Yes (Other)
  Sender: FDA-Public Use
  Company Number: FR-ASTRAZENECA-2017SE60768

PATIENT
  Age: 294 Month
  Sex: Male

DRUGS (11)
  1. IVACAFTOR [Suspect]
     Active Substance: IVACAFTOR
     Route: 048
     Dates: start: 20161013, end: 20170306
  2. ZITHROMAX [Suspect]
     Active Substance: AZITHROMYCIN DIHYDRATE
     Route: 065
     Dates: end: 20170306
  3. XYZALL [Suspect]
     Active Substance: LEVOCETIRIZINE DIHYDROCHLORIDE
     Route: 065
     Dates: end: 20170306
  4. TOCO [Concomitant]
     Active Substance: UNSPECIFIED INGREDIENT
  5. IVACAFTOR [Suspect]
     Active Substance: IVACAFTOR
     Route: 048
     Dates: start: 20160321, end: 20160408
  6. TOBI [Suspect]
     Active Substance: TOBRAMYCIN
     Route: 065
  7. SERETIDE [Suspect]
     Active Substance: FLUTICASONE PROPIONATE\SALMETEROL XINAFOATE
     Dosage: 250/50, UNKNOWN
     Route: 065
  8. UVEDOSE [Concomitant]
     Active Substance: CHOLECALCIFEROL
  9. MOPRAL [Suspect]
     Active Substance: OMEPRAZOLE SODIUM
     Route: 048
     Dates: end: 20170306
  10. CREON [Concomitant]
     Active Substance: PANCRELIPASE AMYLASE\PANCRELIPASE LIPASE\PANCRELIPASE PROTEASE
  11. DELURSAN [Concomitant]
     Active Substance: URSODIOL

REACTIONS (8)
  - Prothrombin level decreased [Recovered/Resolved]
  - Transaminases increased [Recovering/Resolving]
  - Myalgia [Recovered/Resolved]
  - Prothrombin time ratio decreased [Recovered/Resolved]
  - Activated partial thromboplastin time prolonged [Recovered/Resolved]
  - Cough [Recovering/Resolving]
  - Haemoptysis [Recovered/Resolved]
  - Blood creatine phosphokinase increased [Recovering/Resolving]

NARRATIVE: CASE EVENT DATE: 201703
